FAERS Safety Report 5190222-7 (Version None)
Quarter: 2006Q4

REPORT INFORMATION
  Report Type: 
  Country: None (occurrence: None)
  Receive Date: 20061222
  Receipt Date: 20061006
  Transmission Date: 20070319
  Serious: No
  Sender: FDA-Public Use
  Company Number: US-AMGEN-KDL196055

PATIENT
  Sex: Female

DRUGS (10)
  1. NEULASTA [Suspect]
     Indication: CHEMOTHERAPY
     Route: 058
     Dates: start: 20060809, end: 20061011
  2. ARANESP [Suspect]
     Dates: start: 20060822, end: 20061010
  3. TAXOL [Concomitant]
  4. CARBOPLATIN [Concomitant]
  5. DECADRON [Concomitant]
  6. BENADRYL [Concomitant]
  7. ZANTAC [Concomitant]
  8. DIOVAN [Concomitant]
  9. SYNTHROID [Concomitant]
  10. PREVACID [Concomitant]

REACTIONS (6)
  - ABDOMINAL DISCOMFORT [None]
  - BLOOD PRESSURE INCREASED [None]
  - BONE PAIN [None]
  - CHEST PAIN [None]
  - HEADACHE [None]
  - PAIN IN EXTREMITY [None]
